FAERS Safety Report 23330462 (Version 1)
Quarter: 2023Q4

REPORT INFORMATION
  Report Type: Spontaneous
  Country: US (occurrence: US)
  Receive Date: 20231222
  Receipt Date: 20231222
  Transmission Date: 20240109
  Serious: No
  Sender: FDA-Public Use
  Company Number: US-EDENBRIDGE PHARMACEUTICALS, LLC-US-2023EDE000083

PATIENT
  Age: 33 Year
  Sex: Female

DRUGS (6)
  1. IVERMECTIN [Suspect]
     Active Substance: IVERMECTIN
     Indication: Rosacea
     Dosage: 12 MG, SINGLE
     Route: 048
     Dates: start: 20230715, end: 20230715
  2. IVERMECTIN [Suspect]
     Active Substance: IVERMECTIN
     Dosage: 12 MG, SINGLE
     Route: 048
     Dates: start: 20230722, end: 20230722
  3. DOXYCYCLINE [Concomitant]
     Active Substance: DOXYCYCLINE
     Indication: Product used for unknown indication
     Dosage: 50 MG, BID
     Route: 065
     Dates: start: 20230707, end: 20230810
  4. CITALOPRAM [Concomitant]
     Active Substance: CITALOPRAM HYDROBROMIDE
     Indication: Product used for unknown indication
     Dosage: 10 MG, QD
     Route: 065
     Dates: start: 20230721, end: 20230810
  5. LORATADINE [Concomitant]
     Active Substance: LORATADINE
     Indication: Product used for unknown indication
     Dosage: 1 MG, TID
     Route: 065
  6. LORAZEPAM [Concomitant]
     Active Substance: LORAZEPAM
     Indication: Anxiety
     Dosage: UNK, AS NEEDED
     Route: 065
     Dates: start: 20230703, end: 20230810

REACTIONS (17)
  - Premature menopause [Unknown]
  - Menopausal symptoms [Unknown]
  - Hypomenorrhoea [Unknown]
  - Menstruation irregular [Unknown]
  - Breast atrophy [Unknown]
  - Vulvovaginal dryness [Unknown]
  - Hot flush [Unknown]
  - Gastrointestinal injury [Unknown]
  - Eating disorder [Unknown]
  - Anxiety [Unknown]
  - Vanillyl mandelic acid urine increased [Unknown]
  - Hormone level abnormal [Unknown]
  - Mental status changes [Unknown]
  - Emotional distress [Unknown]
  - Insomnia [Unknown]
  - Tremor [Unknown]
  - Off label use [Unknown]

NARRATIVE: CASE EVENT DATE: 20230101
